FAERS Safety Report 9776088 (Version 1)
Quarter: 2013Q4

REPORT INFORMATION
  Report Type: Spontaneous
  Country: BR (occurrence: BR)
  Receive Date: 20131220
  Receipt Date: 20131220
  Transmission Date: 20140711
  Serious: Yes (Other)
  Sender: FDA-Public Use
  Company Number: 2013SP003626

PATIENT
  Age: 69 Year
  Sex: Female
  Weight: 75 kg

DRUGS (6)
  1. OMNARIS NASAL SPRAY [Suspect]
     Indication: SINUSITIS
     Route: 045
     Dates: start: 20131205, end: 20131207
  2. OMEPRAZOLE [Concomitant]
     Dates: start: 2005
  3. ENALAPRIL [Concomitant]
     Dates: start: 2010
  4. ATENOLOL [Concomitant]
     Dates: start: 1998
  5. SIMVASTATIN [Concomitant]
     Dates: start: 1998
  6. BROMAZEPAM [Concomitant]
     Dates: start: 1993

REACTIONS (3)
  - Pruritus [Recovering/Resolving]
  - Erythema [Recovering/Resolving]
  - Off label use [None]
